FAERS Safety Report 5834299-1 (Version None)
Quarter: 2008Q3

REPORT INFORMATION
  Report Type: 
  Country: None (occurrence: None)
  Receive Date: 20080805
  Receipt Date: 20080730
  Transmission Date: 20090109
  Serious: Yes (Other)
  Sender: FDA-Public Use
  Company Number: US-BRISTOL-MYERS SQUIBB COMPANY-14280432

PATIENT
  Age: 39 Year
  Sex: Female

DRUGS (9)
  1. CYCLOPHOSPHAMIDE [Suspect]
  2. ETOPOSIDE [Suspect]
     Indication: ACUTE MYELOID LEUKAEMIA
  3. CYTARABINE [Suspect]
     Indication: ACUTE MYELOID LEUKAEMIA
  4. DAUNORUBICIN HCL [Suspect]
     Indication: ACUTE MYELOID LEUKAEMIA
  5. MITOXANTRONE [Suspect]
     Indication: ACUTE MYELOID LEUKAEMIA
  6. ASPARAGINASE [Suspect]
     Indication: ACUTE MYELOID LEUKAEMIA
  7. METHOTREXATE [Suspect]
     Indication: PROPHYLAXIS AGAINST GRAFT VERSUS HOST DISEASE
  8. TACROLIMUS [Suspect]
     Indication: PROPHYLAXIS AGAINST GRAFT VERSUS HOST DISEASE
  9. RADIATION THERAPY [Suspect]
     Dosage: DF = GRAY. 12 GRAY IN FOUR FRACTIONS.

REACTIONS (1)
  - GUILLAIN-BARRE SYNDROME [None]
